FAERS Safety Report 6117840-3 (Version None)
Quarter: 2009Q1

REPORT INFORMATION
  Report Type: 
  Country: None (occurrence: None)
  Receive Date: 20090314
  Receipt Date: 20090129
  Transmission Date: 20090719
  Serious: No
  Sender: FDA-Public Use
  Company Number: US-ABBOTT-09P-163-0500973-00

PATIENT
  Sex: Male
  Weight: 61.29 kg

DRUGS (4)
  1. HUMIRA [Suspect]
     Indication: COLITIS ULCERATIVE
     Route: 058
     Dates: start: 20081218
  2. PROBIOTICS [Concomitant]
     Indication: COLITIS ULCERATIVE
  3. MULTI-VITAMIN [Concomitant]
     Indication: COLITIS ULCERATIVE
     Dosage: UNKNOWN
  4. FLAX SEED [Concomitant]
     Indication: COLITIS ULCERATIVE
     Dosage: UNKNOWN

REACTIONS (1)
  - INCORRECT DOSE ADMINISTERED [None]
